FAERS Safety Report 19233630 (Version 4)
Quarter: 2021Q3

REPORT INFORMATION
  Report Type: Report from Study
  Country: US (occurrence: US)
  Receive Date: 20210507
  Receipt Date: 20210709
  Transmission Date: 20211014
  Serious: Yes (Death, Hospitalization)
  Sender: FDA-Public Use
  Company Number: US-AURINIA PHARMACEUTICALS INC.-AUR-000048

PATIENT
  Age: 28 Year
  Sex: Female

DRUGS (2)
  1. LUPKYNIS [Suspect]
     Active Substance: VOCLOSPORIN
     Indication: LUPUS NEPHRITIS
     Dosage: 23.7 MILLIGRAM, BID
     Route: 048
     Dates: start: 20210212, end: 2021
  2. LUPKYNIS [Suspect]
     Active Substance: VOCLOSPORIN
     Dosage: 7.9 MILLIGRAM, BID, (INSTEAD OF 23.7 MILLIGRAM BID)
     Route: 048
     Dates: start: 2021, end: 20210420

REACTIONS (7)
  - Pneumonia [Unknown]
  - Pericardial effusion [Unknown]
  - Death [Fatal]
  - Therapy change [Unknown]
  - Vomiting [Unknown]
  - Hypertension [Unknown]
  - Pleural effusion [Unknown]

NARRATIVE: CASE EVENT DATE: 202106
